FAERS Safety Report 17452278 (Version 2)
Quarter: 2020Q1

REPORT INFORMATION
  Report Type: Spontaneous
  Country: US (occurrence: US)
  Receive Date: 20200224
  Receipt Date: 20200225
  Transmission Date: 20200409
  Serious: No
  Sender: FDA-Public Use
  Company Number: US-FAGRON STERILE SERVICES-2080827

PATIENT
  Age: 63 Year
  Sex: Male

DRUGS (1)
  1. SUCCINYLCHOLINE CHLORIDE 20MG/ML INJ (API) 5ML [Suspect]
     Active Substance: SUCCINYLCHOLINE CHLORIDE

REACTIONS (1)
  - Drug ineffective [None]
